FAERS Safety Report 21621351 (Version 1)
Quarter: 2022Q4

REPORT INFORMATION
  Report Type: Spontaneous
  Country: US (occurrence: US)
  Receive Date: 20221121
  Receipt Date: 20221121
  Transmission Date: 20230113
  Serious: No
  Sender: FDA-Public Use
  Company Number: US-LUPIN PHARMACEUTICALS INC.-2022-13572

PATIENT
  Age: 15 Year
  Sex: Female

DRUGS (4)
  1. LEVOTHYROXINE SODIUM [Suspect]
     Active Substance: LEVOTHYROXINE SODIUM
     Indication: Hypothyroidism
     Dosage: UNK
     Route: 065
  2. FERROUS SULFATE [Concomitant]
     Active Substance: FERROUS SULFATE
     Indication: Iron deficiency anaemia
     Dosage: 325 MILLIGRAM, BID
     Route: 048
  3. ESOMEPRAZOLE [Concomitant]
     Active Substance: ESOMEPRAZOLE
     Indication: Gastric ulcer
     Dosage: UNK
     Route: 065
  4. CARAFATE [Concomitant]
     Active Substance: SUCRALFATE
     Indication: Gastric ulcer
     Dosage: UNK (LIQUID)
     Route: 065

REACTIONS (2)
  - Intentional product misuse [Unknown]
  - Drug ineffective [Unknown]
